FAERS Safety Report 7127473-8 (Version None)
Quarter: 2010Q4

REPORT INFORMATION
  Report Type: 
  Country: None (occurrence: None)
  Receive Date: 20101129
  Receipt Date: 20100727
  Transmission Date: 20110411
  Serious: Yes (Other)
  Sender: FDA-Public Use
  Company Number: US-PFIZER INC-2010012668

PATIENT
  Sex: Male

DRUGS (2)
  1. VIAGRA [Suspect]
     Indication: ERECTILE DYSFUNCTION
     Dosage: 50 MG, 3X/WEEKLY
     Route: 048
  2. CIALIS [Suspect]
     Dosage: 20 MG, UNK

REACTIONS (1)
  - DEAFNESS UNILATERAL [None]
